FAERS Safety Report 8948215 (Version 1)
Quarter: 2012Q4

REPORT INFORMATION
  Report Type: Spontaneous
  Country: GB (occurrence: None)
  Receive Date: 20121127
  Receipt Date: 20121127
  Transmission Date: 20130627
  Serious: Yes (Other)
  Sender: FDA-Public Use
  Company Number: GER/UKI/12/0026735

PATIENT
  Age: 39 Year
  Sex: Female
  Weight: 104.7 kg

DRUGS (2)
  1. SERTRALINE [Suspect]
     Indication: POSTPARTUM DEPRESSION
     Route: 048
     Dates: start: 20121101, end: 20121107
  2. CONTRACEPTIVE PILL NOS (CONTRACEPTIVES) [Concomitant]

REACTIONS (18)
  - Abnormal behaviour [None]
  - Anxiety [None]
  - Decreased appetite [None]
  - Dizziness [None]
  - Dry mouth [None]
  - Dry skin [None]
  - Insomnia [None]
  - Irritability [None]
  - Mood swings [None]
  - Nausea [None]
  - Paranoia [None]
  - Paraesthesia [None]
  - Disturbance in attention [None]
  - Dysarthria [None]
  - Suicidal ideation [None]
  - Tearfulness [None]
  - Candidiasis [None]
  - Product substitution issue [None]
